FAERS Safety Report 21406048 (Version 4)
Quarter: 2022Q4

REPORT INFORMATION
  Report Type: Report from Study
  Country: PL (occurrence: None)
  Receive Date: 20221004
  Receipt Date: 20221230
  Transmission Date: 20230112
  Serious: Yes (Life-Threatening, Hospitalization)
  Sender: FDA-Public Use
  Company Number: PL-ROCHE-3191106

PATIENT
  Age: 35 Year
  Sex: Male
  Weight: 64 kg

DRUGS (2)
  1. ATEZOLIZUMAB [Suspect]
     Active Substance: ATEZOLIZUMAB
     Indication: Lung cancer metastatic
     Dosage: ON 09/SEP/2022, THE PATIENT WAS RECEIVED MOST RECENT DOSE OF ATEZOLIZUMAB AT 1200 MG PRIOR TO AE/SAE
     Route: 041
     Dates: start: 20211001
  2. CABOZANTINIB [Suspect]
     Active Substance: CABOZANTINIB
     Indication: Lung cancer metastatic
     Dosage: ON 09/SEP/2022, THE PATIENT RECEIVED MOST RECENT DOSE OF CABOZANTINIB AT 20 MG PRIOR TO AE/SAE ONSET
     Route: 048
     Dates: start: 20211001

REACTIONS (1)
  - Intestinal fistula [Recovering/Resolving]

NARRATIVE: CASE EVENT DATE: 20220924
